FAERS Safety Report 22397618 (Version 1)
Quarter: 2023Q2

REPORT INFORMATION
  Report Type: Spontaneous
  Country: US (occurrence: US)
  Receive Date: 20230602
  Receipt Date: 20230602
  Transmission Date: 20230722
  Serious: Yes (Other)
  Sender: FDA-Public Use
  Company Number: US-ASTELLAS-2023EU001504

PATIENT
  Sex: Male

DRUGS (2)
  1. TARCEVA [Suspect]
     Active Substance: ERLOTINIB HYDROCHLORIDE
     Indication: Ductal adenocarcinoma of pancreas
     Dosage: UNK UNK, ONCE DAILY
     Route: 065
  2. GEMCITABINE [Suspect]
     Active Substance: GEMCITABINE
     Indication: Ductal adenocarcinoma of pancreas
     Dosage: UNK UNK, ONCE WEEKLY (EVERY WEEK FOR FIRST 3 WEEKS OF 4-WEEK CYCLE)
     Route: 065

REACTIONS (1)
  - Malignant neoplasm progression [Unknown]
